FAERS Safety Report 5937130-9 (Version None)
Quarter: 2008Q4

REPORT INFORMATION
  Report Type: 
  Country: None (occurrence: None)
  Receive Date: 20081031
  Receipt Date: 20081022
  Transmission Date: 20090506
  Serious: Yes (Hospitalization)
  Sender: FDA-Public Use
  Company Number: PHHY2008MX25900

PATIENT
  Age: 72 Year
  Sex: Male

DRUGS (1)
  1. DIOVAN HCT [Suspect]
     Indication: HYPERTENSION
     Dosage: 1 TABLET (160 MG VALSARTAN/12.5 MG HYDROCHLOROTHIAZIDE)
     Route: 048
     Dates: start: 20050101

REACTIONS (2)
  - INFARCTION [None]
  - PAIN IN EXTREMITY [None]
